FAERS Safety Report 23818838 (Version 1)
Quarter: 2024Q2

REPORT INFORMATION
  Report Type: Other
  Country: ZA (occurrence: None)
  Receive Date: 20240506
  Receipt Date: 20240506
  Transmission Date: 20240716
  Serious: Yes (Hospitalization, Other)
  Sender: FDA-Public Use
  Company Number: ZA-ROCHE-3361568

PATIENT
  Sex: Male

DRUGS (2)
  1. OCREVUS [Suspect]
     Active Substance: OCRELIZUMAB
     Indication: Relapsing-remitting multiple sclerosis
     Dosage: THEREAFTER 600MG EVERY 6 MONTHS
     Route: 041
     Dates: start: 20221111
  2. SOLU-MEDROL [Concomitant]
     Active Substance: METHYLPREDNISOLONE SODIUM SUCCINATE

REACTIONS (14)
  - Ophthalmoplegia [Unknown]
  - Dysdiadochokinesis [Unknown]
  - Eye movement disorder [Unknown]
  - Dysarthria [Unknown]
  - Hyperreflexia [Unknown]
  - Muscle spasticity [Unknown]
  - Tremor [Unknown]
  - Gait inability [Unknown]
  - Urinary tract infection [Unknown]
  - Decreased vibratory sense [Unknown]
  - Muscular weakness [Unknown]
  - Montreal cognitive assessment abnormal [Unknown]
  - Magnetic resonance imaging abnormal [Unknown]
  - Multiple sclerosis [Unknown]
